FAERS Safety Report 22199165 (Version 1)
Quarter: 2023Q2

REPORT INFORMATION
  Report Type: Report from Study
  Country: US (occurrence: US)
  Receive Date: 20230411
  Receipt Date: 20230411
  Transmission Date: 20230722
  Serious: Yes (Other)
  Sender: FDA-Public Use
  Company Number: US-ABBVIE-4716939

PATIENT
  Age: 87 Year
  Sex: Female
  Weight: 69.853 kg

DRUGS (13)
  1. VENCLEXTA [Suspect]
     Active Substance: VENETOCLAX
     Indication: Immune thrombocytopenia
     Route: 048
     Dates: end: 20230331
  2. VENCLEXTA [Suspect]
     Active Substance: VENETOCLAX
     Indication: Immune thrombocytopenia
     Dosage: 100MG(1X100MG TAB) BY MOUTH DAILY WEEK 3
     Route: 048
  3. VENCLEXTA [Suspect]
     Active Substance: VENETOCLAX
     Indication: Immune thrombocytopenia
     Dosage: 50MG(1X50MG TAB) DAILY BY MOUTH WEEK 2
     Route: 048
  4. VENCLEXTA [Suspect]
     Active Substance: VENETOCLAX
     Indication: Immune thrombocytopenia
     Route: 048
  5. VENCLEXTA [Suspect]
     Active Substance: VENETOCLAX
     Indication: Immune thrombocytopenia
     Dosage: 200MG(2X100MG TABS) DAILY WEEK 4
     Route: 048
  6. VENCLEXTA [Suspect]
     Active Substance: VENETOCLAX
     Indication: Immune thrombocytopenia
     Dosage: TAKE 20MG(2X10MG TABS) BY MOUTH EVERY DAY ON WEEK 1
     Route: 048
  7. PREDNISONE [Concomitant]
     Active Substance: PREDNISONE
     Indication: Chronic lymphocytic leukaemia
     Route: 048
  8. PREDNISONE [Concomitant]
     Active Substance: PREDNISONE
     Indication: Chronic lymphocytic leukaemia
     Dosage: 15 MG
     Route: 048
  9. PREDNISONE [Concomitant]
     Active Substance: PREDNISONE
     Indication: Chronic lymphocytic leukaemia
     Dosage: 12.5 MG
     Route: 048
  10. PREDNISONE [Concomitant]
     Active Substance: PREDNISONE
     Indication: Chronic lymphocytic leukaemia
     Dosage: 10 MG
     Route: 048
  11. PREDNISONE [Concomitant]
     Active Substance: PREDNISONE
     Indication: Chronic lymphocytic leukaemia
     Dosage: 2.5 MG
     Route: 048
  12. PREDNISONE [Concomitant]
     Active Substance: PREDNISONE
     Indication: Chronic lymphocytic leukaemia
     Dosage: 7.5 MG
     Route: 048
  13. RITUXAN [Suspect]
     Active Substance: RITUXIMAB
     Indication: Chronic lymphocytic leukaemia
     Route: 048
     Dates: start: 202301

REACTIONS (5)
  - Splenectomy [Unknown]
  - Lip swelling [Not Recovered/Not Resolved]
  - Mouth swelling [Not Recovered/Not Resolved]
  - Pneumonia [Unknown]
  - Sepsis [Unknown]

NARRATIVE: CASE EVENT DATE: 20230331
